FAERS Safety Report 18875278 (Version 3)
Quarter: 2021Q1

REPORT INFORMATION
  Report Type: Spontaneous
  Country: US (occurrence: US)
  Receive Date: 20210211
  Receipt Date: 20210323
  Transmission Date: 20210420
  Serious: No
  Sender: FDA-Public Use
  Company Number: US-AMGEN-USASP2021018643

PATIENT
  Age: 72 Year
  Sex: Male
  Weight: 94.33 kg

DRUGS (5)
  1. MORPHINE [Concomitant]
     Active Substance: MORPHINE
     Indication: BACK PAIN
     Dosage: 15 MILLIGRAM, LATER, IT WAS INCREASED TO 30 MG
  2. NEULASTA [Suspect]
     Active Substance: PEGFILGRASTIM
     Dosage: 6 MILLIGRAM
     Route: 065
  3. NEULASTA [Suspect]
     Active Substance: PEGFILGRASTIM
     Dosage: 6 MILLIGRAM
     Route: 065
  4. NEULASTA [Suspect]
     Active Substance: PEGFILGRASTIM
     Indication: NEUTROPENIA
     Dosage: 6 MILLIGRAM
     Route: 065
     Dates: start: 20210201
  5. VITAMIN B12 [Concomitant]
     Active Substance: CYANOCOBALAMIN
     Indication: BACK PAIN
     Dosage: BOOTED HIS B12 UP FROM 1000 TO 2000

REACTIONS (5)
  - Incorrect disposal of product [Unknown]
  - Adverse event [Unknown]
  - Insomnia [Unknown]
  - Back pain [Recovered/Resolved]
  - Device physical property issue [Unknown]

NARRATIVE: CASE EVENT DATE: 202102
